FAERS Safety Report 5935918-1 (Version None)
Quarter: 2008Q4

REPORT INFORMATION
  Report Type: 
  Country: None (occurrence: None)
  Receive Date: 20081030
  Receipt Date: 20080814
  Transmission Date: 20090506
  Serious: No
  Sender: FDA-Public Use
  Company Number: A0741135A

PATIENT
  Sex: Female

DRUGS (3)
  1. IMITREX [Suspect]
     Indication: MIGRAINE
     Dosage: 20MG AS REQUIRED
     Route: 045
  2. PRILOSEC [Concomitant]
  3. ZOCOR [Concomitant]

REACTIONS (2)
  - MIGRAINE [None]
  - THERAPEUTIC RESPONSE DECREASED [None]
